FAERS Safety Report 8160742-1 (Version None)
Quarter: 2012Q1

REPORT INFORMATION
  Report Type: 
  Country: None (occurrence: None)
  Receive Date: 20120223
  Receipt Date: 20120215
  Transmission Date: 20120608
  Serious: Yes (Other)
  Sender: FDA-Public Use
  Company Number: PHHY2011GR33095

PATIENT
  Age: 63 Year
  Sex: Female

DRUGS (4)
  1. EXTAVIA [Suspect]
     Dosage: 0.50 ML, UNK
     Route: 058
  2. EXTAVIA [Suspect]
     Dosage: 1 ML, UNK
     Route: 058
  3. EXTAVIA [Suspect]
     Indication: MULTIPLE SCLEROSIS
     Dosage: UNK UKN, UNK
     Route: 058
     Dates: start: 20101122
  4. EXTAVIA [Suspect]
     Dosage: 0.25 ML, UNK
     Route: 058

REACTIONS (5)
  - PYREXIA [None]
  - RASH GENERALISED [None]
  - INJECTION SITE OEDEMA [None]
  - PNEUMONIA [None]
  - PRURITUS GENERALISED [None]
